FAERS Safety Report 6804043-X (Version None)
Quarter: 2010Q2

REPORT INFORMATION
  Report Type: 
  Country: None (occurrence: None)
  Receive Date: 20100628
  Receipt Date: 20061006
  Transmission Date: 20101027
  Serious: No
  Sender: FDA-Public Use
  Company Number: US-PFIZER INC-2006045959

PATIENT
  Sex: Female

DRUGS (2)
  1. SUTENT [Suspect]
     Dates: start: 20060306
  2. METOPROLOL [Suspect]

REACTIONS (2)
  - BLOOD PRESSURE ORTHOSTATIC [None]
  - HYPOTENSION [None]
